FAERS Safety Report 12814787 (Version 1)
Quarter: 2016Q4

REPORT INFORMATION
  Report Type: Spontaneous
  Country: US (occurrence: US)
  Receive Date: 20161005
  Receipt Date: 20161005
  Transmission Date: 20170207
  Serious: No
  Sender: FDA-Public Use
  Company Number: US-AMGEN-USASP2016001581

PATIENT
  Age: 68 Year
  Sex: Female

DRUGS (1)
  1. PROLIA [Suspect]
     Active Substance: DENOSUMAB
     Indication: OSTEOPOROSIS POSTMENOPAUSAL
     Dosage: UNK
     Route: 065
     Dates: start: 201505

REACTIONS (7)
  - Erythema [Unknown]
  - Peripheral swelling [Unknown]
  - Skin lesion [Unknown]
  - Pruritus [Unknown]
  - Dyspepsia [Unknown]
  - Pain in extremity [Unknown]
  - Urticaria [Unknown]

NARRATIVE: CASE EVENT DATE: 2015
